FAERS Safety Report 25683759 (Version 1)
Quarter: 2025Q3

REPORT INFORMATION
  Report Type: Spontaneous
  Country: JP (occurrence: JP)
  Receive Date: 20250814
  Receipt Date: 20250814
  Transmission Date: 20251020
  Serious: Yes (Other)
  Sender: MERCK SHARP & DOHME LLC
  Company Number: JP-009507513-2317271

PATIENT
  Age: 39 Year
  Sex: Female

DRUGS (1)
  1. PEMBROLIZUMAB [Suspect]
     Active Substance: PEMBROLIZUMAB
     Indication: Gestational trophoblastic tumour

REACTIONS (3)
  - Myelodysplastic syndrome [Unknown]
  - Product use in unapproved indication [Unknown]
  - Acute myeloid leukaemia [Unknown]
